FAERS Safety Report 5763978-X (Version None)
Quarter: 2008Q2

REPORT INFORMATION
  Report Type: 
  Country: None (occurrence: None)
  Receive Date: 20080609
  Receipt Date: 20080325
  Transmission Date: 20081010
  Serious: No
  Sender: FDA-Public Use
  Company Number: 002#2#2008-00148

PATIENT
  Age: 73 Year
  Sex: Male
  Weight: 102 kg

DRUGS (12)
  1. NEUPRO [Suspect]
     Dosage: 2MG/24H,1 IN 1 D,TRANSDERMAL ; 2MG/24H,1 IN 1 D,TRANSDERMAL
     Route: 062
     Dates: start: 20071001, end: 20070101
  2. NEUPRO [Suspect]
     Dosage: 2MG/24H,1 IN 1 D,TRANSDERMAL ; 2MG/24H,1 IN 1 D,TRANSDERMAL
     Route: 062
     Dates: start: 20080301
  3. KLOR-CON [Concomitant]
  4. LISINOPRIL [Concomitant]
  5. SIMVASTATIN [Concomitant]
  6. GLYBURIDE [Concomitant]
  7. TERAZOSIN HCL [Concomitant]
  8. FUROSEMIDE [Concomitant]
  9. TAMSULOSIN HCL [Concomitant]
  10. GABAPENTIN [Concomitant]
  11. CODEINE PHOSPHATE AND ACETAMINOPHEN [Concomitant]
  12. NAPROXEN [Concomitant]

REACTIONS (2)
  - HALLUCINATION [None]
  - PHARMACEUTICAL PRODUCT COMPLAINT [None]
